FAERS Safety Report 7719715-2 (Version None)
Quarter: 2011Q3

REPORT INFORMATION
  Report Type: 
  Country: None (occurrence: None)
  Receive Date: 20110830
  Receipt Date: 20100106
  Transmission Date: 20111222
  Serious: Yes (Other)
  Sender: FDA-Public Use
  Company Number: PHHY2011TW48549

PATIENT
  Sex: Female

DRUGS (3)
  1. GLEEVEC [Suspect]
     Dosage: 400 MG, DAILY
  2. GLEEVEC [Suspect]
     Indication: CHRONIC MYELOID LEUKAEMIA
     Dosage: 400 MG, UNK
  3. GLEEVEC [Suspect]
     Dosage: 200 MG, DAILY

REACTIONS (5)
  - POOR QUALITY SLEEP [None]
  - HEAD DISCOMFORT [None]
  - AFFECTIVE DISORDER [None]
  - BIPOLAR I DISORDER [None]
  - PERSONALITY DISORDER [None]
